FAERS Safety Report 9249555 (Version 1)
Quarter: 2013Q2

REPORT INFORMATION
  Report Type: Spontaneous
  Country: US (occurrence: US)
  Receive Date: 20130423
  Receipt Date: 20130423
  Transmission Date: 20140414
  Serious: Yes (Disabling, Other)
  Sender: FDA-Public Use
  Company Number: US-ASTRAZENECA-2013SE25229

PATIENT
  Age: 62 Year
  Sex: Female
  Weight: 90.7 kg

DRUGS (4)
  1. NEXIUM [Suspect]
     Indication: GASTROOESOPHAGEAL REFLUX DISEASE
     Route: 048
     Dates: start: 2007
  2. LISINOPRIL [Suspect]
     Indication: BLOOD PRESSURE ABNORMAL
     Route: 048
     Dates: start: 2007
  3. AMLOPINE [Concomitant]
     Indication: BLOOD PRESSURE ABNORMAL
     Dates: start: 201303
  4. POTASSIUM [Concomitant]

REACTIONS (5)
  - Cerebrovascular accident [Not Recovered/Not Resolved]
  - Aphagia [Recovering/Resolving]
  - Memory impairment [Not Recovered/Not Resolved]
  - Gastrooesophageal reflux disease [Not Recovered/Not Resolved]
  - Drug dose omission [Recovering/Resolving]
